FAERS Safety Report 8869378 (Version 1)
Quarter: 2012Q4

REPORT INFORMATION
  Report Type: 
  Country: FI (occurrence: FI)
  Receive Date: 20121028
  Receipt Date: 20121028
  Transmission Date: 20130627
  Serious: Yes (Hospitalization)
  Sender: FDA-Public Use
  Company Number: FI-009507513-1210FIN010747

PATIENT
  Age: 41 Year
  Sex: Male

DRUGS (3)
  1. PEGINTRON [Suspect]
     Indication: CHRONIC HEPATITIS
     Dosage: UNK
     Route: 058
     Dates: start: 20120425
  2. REBETOL [Suspect]
     Indication: CHRONIC HEPATITIS
     Dosage: UNK UNK, qd
     Route: 048
     Dates: start: 20120425
  3. VICTRELIS [Suspect]
     Indication: CHRONIC HEPATITIS
     Dosage: UNK UNK, qd
     Route: 048
     Dates: start: 20120627

REACTIONS (5)
  - Groin abscess [Not Recovered/Not Resolved]
  - Haemoglobin decreased [Not Recovered/Not Resolved]
  - Abscess limb [Not Recovered/Not Resolved]
  - Pseudomonal sepsis [Not Recovered/Not Resolved]
  - Neutropenia [Not Recovered/Not Resolved]
